FAERS Safety Report 10064754 (Version 2)
Quarter: 2014Q2

REPORT INFORMATION
  Report Type: Spontaneous
  Country: US (occurrence: None)
  Receive Date: 20140404
  Receipt Date: 20140502
  Transmission Date: 20141212
  Serious: Yes (Hospitalization)
  Sender: FDA-Public Use
  Company Number: UTC-046562

PATIENT
  Age: 51 Year
  Sex: Female
  Weight: 70.76 kg

DRUGS (3)
  1. TYVASO [Suspect]
     Indication: PULMONARY ARTERIAL HYPERTENSION
     Route: 055
     Dates: start: 20131213
  2. LETAIRIS (AMBRISENTAN) (10 MILLIGRAM, TABLET) (AMBRISENTAN) [Concomitant]
  3. ACIRCA (TADALAFIL) [Concomitant]

REACTIONS (5)
  - Cataract [None]
  - Elbow operation [None]
  - Thrombosis [None]
  - Upper limb fracture [None]
  - Fall [None]
